FAERS Safety Report 22243953 (Version 2)
Quarter: 2023Q2

REPORT INFORMATION
  Report Type: Spontaneous
  Country: CY (occurrence: CY)
  Receive Date: 20230424
  Receipt Date: 20230511
  Transmission Date: 20230722
  Serious: Yes (Other)
  Sender: FDA-Public Use
  Company Number: CY-BRISTOL-MYERS SQUIBB COMPANY-2023-057059

PATIENT
  Age: 56 Year
  Sex: Male

DRUGS (2)
  1. ELIQUIS [Suspect]
     Active Substance: APIXABAN
     Indication: Product used for unknown indication
  2. NASIDS [Concomitant]
     Indication: Product used for unknown indication

REACTIONS (2)
  - Arthropathy [Unknown]
  - Haemorrhage [Unknown]
